FAERS Safety Report 5306341-8 (Version None)
Quarter: 2007Q2

REPORT INFORMATION
  Report Type: 
  Country: None (occurrence: None)
  Receive Date: 20070424
  Receipt Date: 20070413
  Transmission Date: 20071010
  Serious: Yes (Hospitalization)
  Sender: FDA-Public Use
  Company Number: US-ELI_LILLY_AND_COMPANY-US200704003134

PATIENT
  Age: 62 Year
  Sex: Female
  Weight: 106.58 kg

DRUGS (5)
  1. BYETTA [Suspect]
     Indication: DIABETES MELLITUS NON-INSULIN-DEPENDENT
     Dosage: 5 UG, 2/D
     Route: 058
     Dates: start: 20060601, end: 20060701
  2. BYETTA [Suspect]
     Dosage: 10 UG, 2/D
     Route: 058
     Dates: start: 20060701, end: 20070404
  3. ECOTRIN [Concomitant]
     Dosage: 325 MG, DAILY (1/D)
     Route: 048
     Dates: start: 20050101, end: 20070404
  4. AMARYL [Concomitant]
     Indication: DIABETES MELLITUS
     Dosage: 2 MG, EACH MORNING
     Route: 048
     Dates: start: 20060601, end: 20070401
  5. AMARYL [Concomitant]
     Dosage: 2 MG, 2/D
     Route: 048
     Dates: start: 20070401

REACTIONS (8)
  - ASTHENIA [None]
  - CHILLS [None]
  - COLITIS [None]
  - DIARRHOEA [None]
  - FATIGUE [None]
  - HYPERHIDROSIS [None]
  - LOWER GASTROINTESTINAL HAEMORRHAGE [None]
  - VOMITING [None]
